FAERS Safety Report 5153698-7 (Version None)
Quarter: 2006Q4

REPORT INFORMATION
  Report Type: 
  Country: None (occurrence: None)
  Receive Date: 20061114
  Receipt Date: 20061027
  Transmission Date: 20070319
  Serious: Yes (Hospitalization)
  Sender: FDA-Public Use
  Company Number: 2006002058

PATIENT
  Age: 73 Year
  Sex: Female

DRUGS (6)
  1. ERLOTINIB [Suspect]
     Indication: GASTROINTESTINAL CARCINOMA
     Dosage: 150 MG (QD), ORAL
     Route: 048
     Dates: start: 20060925
  2. BEVACIZUMAB                  (INJECTION FOR INFUSION) [Suspect]
     Indication: DRUG USE FOR UNKNOWN INDICATION
     Dosage: 630 MG, INTRAVENOUS
     Route: 042
     Dates: start: 20060925, end: 20061009
  3. EMPERAL                       (METOCLOPRAMIDE HYDROCHLORIDE) [Concomitant]
  4. IMOZOP            (ZOPICLONE) [Concomitant]
  5. CONTALGIN         (MORPHINE SULFATE) [Concomitant]
  6. TOILAX      (BISACODYL) [Concomitant]

REACTIONS (1)
  - DRUG HYPERSENSITIVITY [None]
